FAERS Safety Report 6934521-4 (Version None)
Quarter: 2010Q3

REPORT INFORMATION
  Report Type: 
  Country: None (occurrence: None)
  Receive Date: 20100820
  Receipt Date: 20100811
  Transmission Date: 20110219
  Serious: Yes (Other)
  Sender: FDA-Public Use
  Company Number: CH-ABBOTT-10P-151-0663922-00

PATIENT
  Age: 16 Year
  Sex: Female

DRUGS (5)
  1. DEPAKENE [Suspect]
     Indication: BIPOLAR DISORDER
     Dates: end: 20090805
  2. LORAZEPAM [Suspect]
     Indication: PRODUCT USED FOR UNKNOWN INDICATION
     Route: 048
     Dates: start: 20090726, end: 20090726
  3. LORAZEPAM [Suspect]
     Dates: end: 20091027
  4. SEROQUEL [Suspect]
     Indication: PRODUCT USED FOR UNKNOWN INDICATION
     Dates: end: 20090805
  5. METOPROLOL SUCCINATE [Suspect]
     Indication: MIGRAINE
     Dosage: 100 MILLIGRAMS DAILY
     Dates: end: 20100204

REACTIONS (2)
  - DRUG EXPOSURE DURING PREGNANCY [None]
  - SUICIDE ATTEMPT [None]
